FAERS Safety Report 22226759 (Version 1)
Quarter: 2023Q2

REPORT INFORMATION
  Report Type: Spontaneous
  Country: US (occurrence: US)
  Receive Date: 20230419
  Receipt Date: 20230419
  Transmission Date: 20230721
  Serious: Yes (Hospitalization)
  Sender: FDA-Public Use
  Company Number: US-JNJFOC-20230428885

PATIENT
  Age: 64 Year
  Sex: Male

DRUGS (1)
  1. INVOKAMET XR [Suspect]
     Active Substance: CANAGLIFLOZIN\METFORMIN HYDROCHLORIDE
     Indication: Type 2 diabetes mellitus
     Dosage: CANAGLIFLOZIN/METFORMIN HCI 150 MG/1,000MG TABLETS, EXTENDED RELEASE 2 TABS PER ORAL IN MORNING
     Route: 048
     Dates: end: 20180319

REACTIONS (3)
  - Osteomyelitis [Unknown]
  - Diabetic foot [Unknown]
  - Toe amputation [Unknown]

NARRATIVE: CASE EVENT DATE: 20180319
